FAERS Safety Report 7634335-6 (Version None)
Quarter: 2011Q3

REPORT INFORMATION
  Report Type: 
  Country: None (occurrence: None)
  Receive Date: 20110725
  Receipt Date: 20110316
  Transmission Date: 20111222
  Serious: No
  Sender: FDA-Public Use
  Company Number: US-MYLANLABS-2011S1005739

PATIENT
  Sex: Male

DRUGS (1)
  1. BUSPIRONE HCL [Suspect]
     Indication: ANXIETY
     Route: 048

REACTIONS (1)
  - SOMNOLENCE [None]
